FAERS Safety Report 12318500 (Version 1)
Quarter: 2016Q2

REPORT INFORMATION
  Report Type: Spontaneous
  Country: US (occurrence: US)
  Receive Date: 20160429
  Receipt Date: 20160429
  Transmission Date: 20160815
  Serious: No
  Sender: FDA-Public Use
  Company Number: US-WARNER CHILCOTT, LLC-1051206

PATIENT
  Age: 76 Year
  Sex: Female

DRUGS (6)
  1. ATELVIA [Suspect]
     Active Substance: RISEDRONATE SODIUM
     Indication: OSTEOPOROSIS
     Route: 048
     Dates: start: 20150419, end: 20150426
  2. NIFEDIPINE. [Concomitant]
     Active Substance: NIFEDIPINE
  3. ASPIRIN. [Concomitant]
     Active Substance: ASPIRIN
  4. TOPAMAX [Concomitant]
     Active Substance: TOPIRAMATE
  5. HORMONES [Concomitant]
     Active Substance: UNSPECIFIED INGREDIENT
  6. CALCIUM VITAMIN D [Concomitant]
     Active Substance: CALCIUM\VITAMIN D

REACTIONS (4)
  - Oesophageal pain [Not Recovered/Not Resolved]
  - Nausea [Not Recovered/Not Resolved]
  - Abdominal pain upper [Not Recovered/Not Resolved]
  - Dizziness [Not Recovered/Not Resolved]
